FAERS Safety Report 8617047-1 (Version None)
Quarter: 2012Q3

REPORT INFORMATION
  Report Type: 
  Country: None (occurrence: None)
  Receive Date: 20120823
  Receipt Date: 20120815
  Transmission Date: 20120928
  Serious: Yes (Other)
  Sender: FDA-Public Use
  Company Number: US-MERCK-1208USA007052

PATIENT

DRUGS (6)
  1. HYZAAR [Suspect]
     Indication: HYPERTENSION
     Dosage: 100/25 MG, UID/QD
     Route: 048
     Dates: start: 20070101
  2. OMEGA-3-ACID ETHYL ESTERS [Concomitant]
     Dosage: 1000 MG, UNK
  3. AMLODIPINE BESYLATE [Concomitant]
     Dosage: 10 MG, UNK
  4. METFORMIN HYDROCHLORIDE [Concomitant]
     Dosage: 500 MG, UNK
  5. HYDROCHLOROTHIAZIDE [Concomitant]
     Dosage: 25 MG, UNK
  6. ASPIRIN [Concomitant]
     Dosage: 81 MG, UNK

REACTIONS (1)
  - ANGIOEDEMA [None]
